FAERS Safety Report 7440614-8 (Version None)
Quarter: 2011Q2

REPORT INFORMATION
  Report Type: 
  Country: None (occurrence: None)
  Receive Date: 20110427
  Receipt Date: 20110420
  Transmission Date: 20111010
  Serious: Yes (Death)
  Sender: FDA-Public Use
  Company Number: B0715034A

PATIENT
  Sex: Male
  Weight: 8.5 kg

DRUGS (4)
  1. CYCLOSPORINE [Concomitant]
     Indication: IMMUNOSUPPRESSION
     Route: 065
     Dates: start: 20050620, end: 20050630
  2. ALKERAN [Suspect]
     Indication: CORD BLOOD TRANSPLANT THERAPY
     Dosage: 90MGM2 PER DAY
     Route: 042
     Dates: start: 20050619, end: 20050620
  3. BUSULFAN [Concomitant]
     Indication: CORD BLOOD TRANSPLANT THERAPY
     Dosage: 6.7MGK PER DAY
     Route: 048
     Dates: start: 20050613, end: 20050616
  4. CYLOCIDE [Concomitant]
     Indication: CORD BLOOD TRANSPLANT THERAPY
     Dosage: 200MGM2 PER DAY
     Route: 042
     Dates: start: 20050613, end: 20050620

REACTIONS (5)
  - RESPIRATORY FAILURE [None]
  - PUTAMEN HAEMORRHAGE [None]
  - PULMONARY HAEMORRHAGE [None]
  - HAEMORRHAGE INTRACRANIAL [None]
  - SEPSIS [None]
